FAERS Safety Report 7003150-9 (Version None)
Quarter: 2010Q3

REPORT INFORMATION
  Report Type: 
  Country: None (occurrence: None)
  Receive Date: 20100920
  Receipt Date: 20090915
  Transmission Date: 20110219
  Serious: No
  Sender: FDA-Public Use
  Company Number: US-ASTRAZENECA-2009SE13871

PATIENT
  Age: 16 Year
  Sex: Female

DRUGS (2)
  1. SEROQUEL [Suspect]
     Dosage: DAILY
     Route: 048
  2. PROZAC [Concomitant]

REACTIONS (1)
  - ABNORMAL WEIGHT GAIN [None]
